FAERS Safety Report 10479484 (Version 1)
Quarter: 2014Q3

REPORT INFORMATION
  Report Type: Report from Study
  Country: US (occurrence: US)
  Receive Date: 20140926
  Receipt Date: 20140926
  Transmission Date: 20150326
  Serious: Yes (Hospitalization, Other)
  Sender: FDA-Public Use
  Company Number: US-ALEXION PHARMACEUTICALS INC-A201102513

PATIENT
  Age: 70 Year
  Sex: Female

DRUGS (2)
  1. SOLIRIS [Suspect]
     Active Substance: ECULIZUMAB
     Indication: PAROXYSMAL NOCTURNAL HAEMOGLOBINURIA
     Dosage: 900 MG, Q2W
     Route: 042
     Dates: start: 20110301
  2. CYCLOSPORIN [Concomitant]
     Active Substance: CYCLOSPORINE
     Indication: BONE MARROW DISORDER
     Dosage: UNK
     Dates: start: 201108

REACTIONS (9)
  - Bone marrow failure [Unknown]
  - Tremor [Unknown]
  - Biopsy bone marrow [Unknown]
  - Staring [Unknown]
  - Feeling cold [Unknown]
  - Haemolysis [Unknown]
  - Transfusion [Unknown]
  - Fatigue [Unknown]
  - Drug dose omission [Unknown]

NARRATIVE: CASE EVENT DATE: 201109
